FAERS Safety Report 18940643 (Version 1)
Quarter: 2021Q1

REPORT INFORMATION
  Report Type: Report from Study
  Country: GH (occurrence: GH)
  Receive Date: 20210225
  Receipt Date: 20210225
  Transmission Date: 20210420
  Serious: Yes (Other)
  Sender: FDA-Public Use
  Company Number: NVSC2021GH037168

PATIENT
  Age: 52 Year
  Sex: Male

DRUGS (1)
  1. UPERIO [Suspect]
     Active Substance: SACUBITRIL\VALSARTAN
     Indication: CONGESTIVE CARDIOMYOPATHY
     Dosage: 50 MG, BID
     Route: 048

REACTIONS (4)
  - Malaise [Not Recovered/Not Resolved]
  - Malaria [Not Recovered/Not Resolved]
  - Product use in unapproved indication [Unknown]
  - Typhoid fever [Not Recovered/Not Resolved]
